FAERS Safety Report 8707546 (Version 2)
Quarter: 2013Q4

REPORT INFORMATION
  Report Type: Spontaneous
  Country: US (occurrence: US)
  Receive Date: 20120805
  Receipt Date: 20131101
  Transmission Date: 20140711
  Serious: No
  Sender: FDA-Public Use
  Company Number: US-009507513-1207USA009567

PATIENT
  Age: 48 Year
  Sex: Male

DRUGS (3)
  1. JANUVIA [Suspect]
     Route: 048
  2. KOMBIGLYZE XR [Suspect]
  3. METFORMIN [Suspect]

REACTIONS (2)
  - Nausea [Unknown]
  - Vomiting [Unknown]
